FAERS Safety Report 13096943 (Version 2)
Quarter: 2017Q1

REPORT INFORMATION
  Report Type: Spontaneous
  Country: US (occurrence: US)
  Receive Date: 20170109
  Receipt Date: 20170109
  Transmission Date: 20170428
  Serious: No
  Sender: FDA-Public Use
  Company Number: US-PFIZER INC-2017003626

PATIENT
  Age: 37 Year
  Sex: Male

DRUGS (4)
  1. VALACYCLOVIR HCL [Concomitant]
     Active Substance: VALACYCLOVIR HYDROCHLORIDE
     Indication: RASH
  2. HYDROCODONE BITARTRATE AND ACETAMINOPHEN [Concomitant]
     Active Substance: ACETAMINOPHEN\HYDROCODONE BITARTRATE
     Indication: PAIN
     Dosage: UNK UNK, 4X/DAY
     Route: 048
     Dates: start: 201612, end: 201612
  3. LYRICA [Suspect]
     Active Substance: PREGABALIN
     Indication: HERPES ZOSTER
     Dosage: 75 MG, 2X/DAY
     Dates: start: 201612
  4. VALACYCLOVIR HCL [Concomitant]
     Active Substance: VALACYCLOVIR HYDROCHLORIDE
     Indication: HERPES ZOSTER
     Dosage: 1 G, UNK, EVERY 8 HOURS
     Route: 048
     Dates: start: 201612, end: 201612

REACTIONS (2)
  - Drug ineffective [Unknown]
  - Insomnia [Unknown]
